FAERS Safety Report 5194902-9 (Version None)
Quarter: 2006Q4

REPORT INFORMATION
  Report Type: 
  Country: None (occurrence: None)
  Receive Date: 20061229
  Receipt Date: 20061102
  Transmission Date: 20070319
  Serious: No
  Sender: FDA-Public Use
  Company Number: US-BRISTOL-MYERS SQUIBB COMPANY-13565437

PATIENT

DRUGS (1)
  1. SPRYCEL [Suspect]

REACTIONS (3)
  - CHRONIC MYELOID LEUKAEMIA [None]
  - PANCYTOPENIA [None]
  - WHITE BLOOD CELL COUNT INCREASED [None]
